FAERS Safety Report 7310720-7 (Version None)
Quarter: 2011Q1

REPORT INFORMATION
  Report Type: 
  Country: None (occurrence: None)
  Receive Date: 20110224
  Receipt Date: 20110114
  Transmission Date: 20110831
  Serious: Yes (Other)
  Sender: FDA-Public Use
  Company Number: PHHY2011JP02511

PATIENT
  Age: 38 Year
  Sex: Female
  Weight: 41 kg

DRUGS (7)
  1. PEMOLINE [Concomitant]
     Dosage: 100 MG, UNK
     Route: 048
  2. ARIPIPRAZOLE [Concomitant]
     Dosage: 0.25 MG, UNK
     Route: 048
  3. BROTIZOLAM [Concomitant]
     Dosage: 0.25 MG, UNK
     Route: 048
  4. FLUNITRAZEPAM [Concomitant]
     Dosage: 2 MG, UNK
     Route: 048
  5. PROPOFOL [Concomitant]
     Indication: GENERAL ANAESTHESIA
     Dosage: UNK
  6. RITALIN [Suspect]
     Indication: NARCOLEPSY
     Dosage: 30 MG DAILY
     Route: 048
  7. LORAZEPAM [Concomitant]
     Dosage: 1.5 MG, UNK
     Route: 048

REACTIONS (6)
  - SKIN ODOUR ABNORMAL [None]
  - CIRCADIAN RHYTHM SLEEP DISORDER [None]
  - ANAESTHETIC COMPLICATION [None]
  - TOOTHACHE [None]
  - DENTAL CARIES [None]
  - ABSCESS [None]
